FAERS Safety Report 25211293 (Version 2)
Quarter: 2025Q2

REPORT INFORMATION
  Report Type: Spontaneous
  Country: FR (occurrence: FR)
  Receive Date: 20250417
  Receipt Date: 20250523
  Transmission Date: 20250716
  Serious: Yes (Death)
  Sender: ABBVIE
  Company Number: FR-ABBVIE-6237445

PATIENT
  Age: 88 Year
  Sex: Male
  Weight: 67 kg

DRUGS (3)
  1. FOSCARBIDOPA\FOSLEVODOPA [Suspect]
     Active Substance: FOSCARBIDOPA\FOSLEVODOPA
     Indication: Product used for unknown indication
     Route: 058
     Dates: start: 20250402, end: 20250404
  2. MORPHINE [Concomitant]
     Active Substance: MORPHINE
     Indication: Product used for unknown indication
     Route: 042
     Dates: start: 20250403
  3. FOLIC ACID [Concomitant]
     Active Substance: FOLIC ACID
     Indication: Product used for unknown indication

REACTIONS (4)
  - Pneumonia aspiration [Fatal]
  - Fall [Fatal]
  - Mobility decreased [Fatal]
  - Fracture [Fatal]

NARRATIVE: CASE EVENT DATE: 20250401
